FAERS Safety Report 5136435-1 (Version None)
Quarter: 2006Q4

REPORT INFORMATION
  Report Type: 
  Country: None (occurrence: None)
  Receive Date: 20061027
  Receipt Date: 20060215
  Transmission Date: 20070319
  Serious: No
  Sender: FDA-Public Use
  Company Number: US-BRISTOL-MYERS SQUIBB COMPANY-13284757

PATIENT
  Age: 28 Year
  Sex: Female
  Weight: 54 kg

DRUGS (1)
  1. KENALOG-40 [Suspect]
     Indication: SINUSITIS
     Route: 030
     Dates: start: 20041103, end: 20050224

REACTIONS (4)
  - INJECTION SITE NERVE DAMAGE [None]
  - INJECTION SITE PAIN [None]
  - INTERVERTEBRAL DISC DEGENERATION [None]
  - MUSCLE ATROPHY [None]
